FAERS Safety Report 4752760-8 (Version None)
Quarter: 2005Q3

REPORT INFORMATION
  Report Type: 
  Country: None (occurrence: None)
  Receive Date: 20050823
  Receipt Date: 20050810
  Transmission Date: 20060218
  Serious: Yes (Other)
  Sender: FDA-Public Use
  Company Number: 2005113775

PATIENT
  Age: 62 Year
  Sex: Male
  Weight: 70.3075 kg

DRUGS (2)
  1. VIAGRA [Suspect]
     Indication: ILL-DEFINED DISORDER
     Dosage: (100 MG, ORAL
     Route: 048
  2. IBUPROFEN [Suspect]
     Indication: ARTHRALGIA
     Dosage: ORAL
     Route: 048

REACTIONS (2)
  - LEUKAEMIA [None]
  - LYMPHOCYTE COUNT INCREASED [None]
